FAERS Safety Report 6831161-2 (Version None)
Quarter: 2010Q3

REPORT INFORMATION
  Report Type: 
  Country: None (occurrence: None)
  Receive Date: 20100712
  Receipt Date: 20100702
  Transmission Date: 20110219
  Serious: Yes (Death)
  Sender: FDA-Public Use
  Company Number: US-JNJFOC-20100702342

PATIENT
  Age: 47 Year
  Sex: Male

DRUGS (11)
  1. HALOPERIDOL [Suspect]
     Indication: AGITATION
     Route: 048
  2. HALOPERIDOL [Suspect]
     Route: 048
  3. OLANZAPINE [Suspect]
     Indication: AGITATION
     Dosage: 2 DOSES OF 10MG 4HOURS APART
     Route: 030
  4. OLANZAPINE [Suspect]
     Dosage: 2 DOSES OF 10MG 4HOURS APART
     Route: 030
  5. PROMAZINE HYDROCHLORIDE [Suspect]
     Indication: PRODUCT USED FOR UNKNOWN INDICATION
     Route: 065
  6. BIPERIDEN HYDROCHLORIDE TAB [Suspect]
     Indication: AGITATION
     Route: 048
  7. BIPERIDEN HYDROCHLORIDE TAB [Suspect]
     Route: 048
  8. PROPRANOLOL [Suspect]
     Indication: PRODUCT USED FOR UNKNOWN INDICATION
     Route: 065
  9. VALPROIC ACID [Suspect]
     Indication: PRODUCT USED FOR UNKNOWN INDICATION
     Route: 065
  10. CLONAZEPAM [Suspect]
     Indication: AGITATION
     Route: 065
  11. MIDAZOLAM HCL [Suspect]
     Indication: AGITATION
     Route: 065

REACTIONS (1)
  - PULMONARY EMBOLISM [None]
